FAERS Safety Report 25293021 (Version 3)
Quarter: 2025Q3

REPORT INFORMATION
  Report Type: Spontaneous
  Country: US (occurrence: US)
  Receive Date: 20250510
  Receipt Date: 20250910
  Transmission Date: 20251021
  Serious: No
  Sender: SANOFI AVENTIS
  Company Number: US-SA-2025SA127243

PATIENT
  Sex: Female

DRUGS (15)
  1. DUPIXENT [Suspect]
     Active Substance: DUPILUMAB
     Indication: Neurodermatitis
     Dosage: 300 MG, QOW
     Route: 058
  2. HYDROCORTISONE [Concomitant]
     Active Substance: HYDROCORTISONE
  3. FAMCICLOVIR [Concomitant]
     Active Substance: FAMCICLOVIR
  4. TRIAMCINOLONE [Concomitant]
     Active Substance: TRIAMCINOLONE
  5. METHYLPREDNISOLONE [Concomitant]
     Active Substance: METHYLPREDNISOLONE
  6. FISH OIL [Concomitant]
     Active Substance: FISH OIL
  7. VITAMIN K [Concomitant]
     Active Substance: PHYTONADIONE
  8. VITAMIN D3 [Concomitant]
     Active Substance: CHOLECALCIFEROL
  9. CLARITHROMYCIN [Concomitant]
     Active Substance: CLARITHROMYCIN
  10. CALCIUM [Concomitant]
     Active Substance: CALCIUM
  11. BUPRENORPHINE [Concomitant]
     Active Substance: BUPRENORPHINE
  12. CLARITIN [Concomitant]
     Active Substance: LORATADINE
  13. VITAMINS [Concomitant]
     Active Substance: VITAMINS
  14. HYDROCORTISONE [Concomitant]
     Active Substance: HYDROCORTISONE
  15. MEDROL [Concomitant]
     Active Substance: METHYLPREDNISOLONE

REACTIONS (6)
  - Lethargy [Unknown]
  - Fatigue [Unknown]
  - Insomnia [Unknown]
  - Herpes virus infection [Unknown]
  - Herpes zoster [Unknown]
  - Urticaria [Unknown]
